FAERS Safety Report 21586229 (Version 1)
Quarter: 2022Q4

REPORT INFORMATION
  Report Type: Spontaneous
  Country: IN (occurrence: IN)
  Receive Date: 20221112
  Receipt Date: 20221112
  Transmission Date: 20230113
  Serious: Yes (Hospitalization, Other)
  Sender: FDA-Public Use
  Company Number: IN-STRIDES ARCOLAB LIMITED-2022SP013923

PATIENT
  Age: 13 Month
  Sex: Male

DRUGS (4)
  1. PREDNISOLONE [Suspect]
     Active Substance: PREDNISOLONE
     Indication: Liver transplant
     Dosage: 1 MILLIGRAM (PER DAY)
     Route: 065
  2. PREDNISOLONE [Suspect]
     Active Substance: PREDNISOLONE
     Dosage: 5 MILLIGRAM PER DAY (DOSE WAS INCREASED)
     Route: 065
  3. TACROLIMUS [Suspect]
     Active Substance: TACROLIMUS
     Indication: Liver transplant
     Dosage: UNK
     Route: 065
  4. TACROLIMUS [Suspect]
     Active Substance: TACROLIMUS
     Dosage: UNK (RECEIVED FOR WITH TARGETED LEVELS OF 7 TO 9 NG/ML)
     Route: 065

REACTIONS (10)
  - Pneumoperitoneum [Recovered/Resolved]
  - Small intestinal perforation [Recovered/Resolved]
  - Renal impairment [Recovered/Resolved]
  - Post transplant lymphoproliferative disorder [Recovered/Resolved]
  - Enterobacter sepsis [Recovered/Resolved]
  - Pseudomonal sepsis [Recovered/Resolved]
  - Klebsiella sepsis [Recovered/Resolved]
  - Candida sepsis [Recovered/Resolved]
  - Drug level increased [Recovered/Resolved]
  - Transplant dysfunction [Recovered/Resolved]
